FAERS Safety Report 5331728-7 (Version None)
Quarter: 2007Q2

REPORT INFORMATION
  Report Type: 
  Country: None (occurrence: None)
  Receive Date: 20070517
  Receipt Date: 20070327
  Transmission Date: 20071010
  Serious: Yes (Hospitalization)
  Sender: FDA-Public Use
  Company Number: TKT01200700160

PATIENT
  Age: 8 Year
  Sex: Male
  Weight: 22.7 kg

DRUGS (1)
  1. IDURSULFASE (IDURSULFASE) (0.5 MILLIGRAM(S) / KILOGRAM, CONCENTRATE FO [Suspect]
     Indication: MUCOPOLYSACCHARIDOSIS II
     Dosage: (11.5 MG, 1 IN 1 WK) INTRAVENOUS DRIP
     Route: 041
     Dates: start: 20070226

REACTIONS (4)
  - BLOOD POTASSIUM DECREASED [None]
  - BLOOD SODIUM DECREASED [None]
  - CATHETER SITE INFECTION [None]
  - DYSGEUSIA [None]
